FAERS Safety Report 20163110 (Version 1)
Quarter: 2021Q4

REPORT INFORMATION
  Report Type: Spontaneous
  Country: CN (occurrence: CN)
  Receive Date: 20211209
  Receipt Date: 20211209
  Transmission Date: 20220303
  Serious: Yes (Other)
  Sender: FDA-Public Use
  Company Number: CN-SUN PHARMACEUTICAL INDUSTRIES LTD-2021R1-319867

PATIENT
  Age: 67 Year
  Sex: Male

DRUGS (3)
  1. DEXMEDETOMIDINE [Suspect]
     Active Substance: DEXMEDETOMIDINE
     Indication: Sedation
     Dosage: UNK (40MICROGRAM)
     Route: 065
  2. PROPOFOL [Suspect]
     Active Substance: PROPOFOL
     Indication: Sedation
     Dosage: UNK,10MG
     Route: 065
  3. sodium-4-hydroxybutyrate [Concomitant]
     Indication: Insomnia
     Dosage: UNK
     Route: 065

REACTIONS (6)
  - Withdrawal syndrome [Unknown]
  - Hallucination, auditory [Recovering/Resolving]
  - Palpitations [Recovering/Resolving]
  - Hyperhidrosis [Recovering/Resolving]
  - Nausea [Recovering/Resolving]
  - Illusion [Recovering/Resolving]
